FAERS Safety Report 7447811-6 (Version None)
Quarter: 2011Q2

REPORT INFORMATION
  Report Type: 
  Country: None (occurrence: None)
  Receive Date: 20110429
  Receipt Date: 20110420
  Transmission Date: 20111010
  Serious: Yes (Hospitalization)
  Sender: FDA-Public Use
  Company Number: US-ASTRAZENECA-2011SE22838

PATIENT
  Age: 40 Year
  Sex: Female
  Weight: 72.6 kg

DRUGS (9)
  1. B1 [Concomitant]
  2. POTASSIUM [Concomitant]
  3. WELLBUTRIN [Concomitant]
  4. MULTI-VITAMIN [Concomitant]
  5. LASIX [Concomitant]
  6. FOLIC ACID [Concomitant]
  7. ALBUTEROL [Concomitant]
  8. SYMBICORT [Suspect]
     Indication: RESPIRATORY DISORDER
     Dosage: 160 UG BID
     Route: 055
     Dates: start: 20110101
  9. FERROUS SULFATE TAB [Concomitant]

REACTIONS (2)
  - MEMORY IMPAIRMENT [None]
  - FALL [None]
